FAERS Safety Report 19251761 (Version 1)
Quarter: 2021Q2

REPORT INFORMATION
  Report Type: Spontaneous
  Country: US (occurrence: US)
  Receive Date: 20210512
  Receipt Date: 20210512
  Transmission Date: 20210717
  Serious: Yes (Other)
  Sender: FDA-Public Use
  Company Number: None

PATIENT
  Age: 64 Year
  Sex: Female
  Weight: 68.85 kg

DRUGS (2)
  1. BAMLANIVIMAB AND ETESEVIMAB IN 160 ML NS [Suspect]
     Active Substance: BAMLANIVIMAB\ETESEVIMAB
     Indication: COVID-19
     Dosage: ?          OTHER FREQUENCY:ONCE;?
     Route: 041
     Dates: start: 20210414, end: 20210414
  2. BAMLANIVIMAB AND ETESEVIMAB IN NS 160 ML [Suspect]
     Active Substance: BAMLANIVIMAB\ETESEVIMAB
     Indication: COVID-19
     Dosage: ?          OTHER FREQUENCY:ONCE;?
     Route: 041
     Dates: start: 20210414, end: 20210414

REACTIONS (1)
  - Vertebral artery dissection [None]

NARRATIVE: CASE EVENT DATE: 20210428
